FAERS Safety Report 12892698 (Version 2)
Quarter: 2016Q4

REPORT INFORMATION
  Report Type: Report from Study
  Country: CO (occurrence: CO)
  Receive Date: 20161028
  Receipt Date: 20161103
  Transmission Date: 20170207
  Serious: Yes (Hospitalization, Other)
  Sender: FDA-Public Use
  Company Number: CO-ASTELLAS-2016US042419

PATIENT
  Age: 73 Year
  Sex: Female
  Weight: 52 kg

DRUGS (2)
  1. TACROLIMUS. [Suspect]
     Active Substance: TACROLIMUS
     Indication: RENAL TRANSPLANT
     Dosage: UNK UNK, UNKNOWN FREQ.
     Route: 065
  2. TACROLIMUS. [Suspect]
     Active Substance: TACROLIMUS
     Indication: RENAL TRANSPLANT
     Route: 048
     Dates: start: 20140713

REACTIONS (2)
  - Kidney transplant rejection [Recovering/Resolving]
  - Renal surgery [Recovering/Resolving]

NARRATIVE: CASE EVENT DATE: 20160701
